FAERS Safety Report 16647079 (Version 3)
Quarter: 2020Q3

REPORT INFORMATION
  Report Type: Spontaneous
  Country: US (occurrence: US)
  Receive Date: 20190730
  Receipt Date: 20200807
  Transmission Date: 20201102
  Serious: Yes (Other)
  Sender: FDA-Public Use
  Company Number: US-GILEAD-2019-0420206

PATIENT
  Age: 53 Year
  Sex: Female

DRUGS (2)
  1. BIKTARVY [Concomitant]
     Active Substance: BICTEGRAVIR SODIUM\EMTRICITABINE\TENOFOVIR ALAFENAMIDE FUMARATE
  2. ATRIPLA [Suspect]
     Active Substance: EFAVIRENZ\EMTRICITABINE\TENOFOVIR DISOPROXIL FUMARATE
     Indication: HIV INFECTION
     Dosage: UNK
     Route: 048
     Dates: start: 201306, end: 201902

REACTIONS (10)
  - Economic problem [Not Recovered/Not Resolved]
  - Chronic kidney disease [Unknown]
  - Multiple fractures [Unknown]
  - Osteoporosis [Unknown]
  - Tooth loss [Unknown]
  - Emotional distress [Not Recovered/Not Resolved]
  - Anxiety [Unknown]
  - Bone density decreased [Unknown]
  - Pain [Not Recovered/Not Resolved]
  - Anhedonia [Unknown]

NARRATIVE: CASE EVENT DATE: 2016
